FAERS Safety Report 7057459-3 (Version None)
Quarter: 2010Q4

REPORT INFORMATION
  Report Type: 
  Country: None (occurrence: None)
  Receive Date: 20101022
  Receipt Date: 20101011
  Transmission Date: 20110411
  Serious: Yes (Hospitalization, Other)
  Sender: FDA-Public Use
  Company Number: PHHY2010DE68547

PATIENT
  Sex: Female
  Weight: 80 kg

DRUGS (4)
  1. CGS 20267 T30748+ [Suspect]
     Indication: BREAST CANCER
     Dosage: 2.5 MG/DAY
     Route: 048
     Dates: start: 20090510
  2. ASPIRIN [Concomitant]
     Indication: REOCCLUSION
     Dosage: 100MG/DAY
     Route: 048
     Dates: start: 20100420
  3. CAPTOPRIL [Concomitant]
     Indication: HYPERTENSION
     Dosage: 1-0-1
     Route: 048
     Dates: start: 20000101
  4. RADIOTHERAPY [Concomitant]
     Dosage: UNK
     Dates: start: 20090401, end: 20090601

REACTIONS (4)
  - ANGINA PECTORIS [None]
  - ARTHRALGIA [None]
  - GENERAL PHYSICAL HEALTH DETERIORATION [None]
  - STENT PLACEMENT [None]
